FAERS Safety Report 25453415 (Version 1)
Quarter: 2025Q2

REPORT INFORMATION
  Report Type: Spontaneous
  Country: PT (occurrence: PT)
  Receive Date: 20250619
  Receipt Date: 20250619
  Transmission Date: 20250716
  Serious: Yes (Other)
  Sender: NOVARTIS
  Company Number: None

PATIENT
  Age: 46 Year
  Sex: Female

DRUGS (6)
  1. KISQALI [Suspect]
     Active Substance: RIBOCICLIB SUCCINATE
     Indication: Hormone receptor positive HER2 negative breast cancer
     Dosage: 400 MG, QD (2 COMPRIMIDOS 1X POR DIA, DURANTE 21 DIAS, INTERROMPE 7 DIAS E RETOMA)
     Route: 048
     Dates: start: 20231207, end: 20240823
  2. KISQALI [Suspect]
     Active Substance: RIBOCICLIB SUCCINATE
     Dosage: 400 MG, QD (2 COMPRIMIDOS 1X POR DIA, DURANTE 21 DIAS, INTERROMPE 7 DIAS E RETOMA)
     Route: 048
     Dates: start: 20231207, end: 20240823
  3. KISQALI [Suspect]
     Active Substance: RIBOCICLIB SUCCINATE
     Dosage: 400 MG, QD (2 COMPRIMIDOS 1X POR DIA, DURANTE 21 DIAS, INTERROMPE 7 DIAS E RETOMA)
     Route: 048
     Dates: start: 20231207, end: 20240823
  4. LETROZOLE [Concomitant]
     Active Substance: LETROZOLE
     Indication: Product used for unknown indication
     Dosage: 2.5 MG, QD
     Route: 048
     Dates: start: 20221129
  5. GOSERELIN [Concomitant]
     Active Substance: GOSERELIN
     Indication: Product used for unknown indication
     Dosage: 3.6 MG, QMO
     Route: 058
     Dates: start: 20221129
  6. TERIFLUNOMIDE [Concomitant]
     Active Substance: TERIFLUNOMIDE
     Indication: Multiple sclerosis
     Dosage: 14 MG, QD
     Route: 065
     Dates: start: 20230104

REACTIONS (1)
  - Vitiligo [Not Recovered/Not Resolved]

NARRATIVE: CASE EVENT DATE: 20240823
